FAERS Safety Report 22250965 (Version 1)
Quarter: 2023Q2

REPORT INFORMATION
  Report Type: Report from Study
  Country: CA (occurrence: CA)
  Receive Date: 20230425
  Receipt Date: 20230425
  Transmission Date: 20230722
  Serious: Yes (Other)
  Sender: FDA-Public Use
  Company Number: CA-HLS-202300854

PATIENT
  Age: 45 Year
  Sex: Male

DRUGS (1)
  1. CLOZARIL [Suspect]
     Active Substance: CLOZAPINE
     Indication: Product used for unknown indication
     Route: 048
     Dates: start: 20210323

REACTIONS (4)
  - Blood cholesterol increased [Unknown]
  - Total cholesterol/HDL ratio increased [Unknown]
  - High density lipoprotein decreased [Unknown]
  - Hypertriglyceridaemia [Unknown]

NARRATIVE: CASE EVENT DATE: 20230407
